FAERS Safety Report 7545522-X (Version None)
Quarter: 2011Q2

REPORT INFORMATION
  Report Type: 
  Country: None (occurrence: None)
  Receive Date: 20110613
  Receipt Date: 20110613
  Transmission Date: 20111010
  Serious: Yes (Hospitalization)
  Sender: FDA-Public Use
  Company Number: None

PATIENT
  Sex: Female
  Weight: 55.8 kg

DRUGS (6)
  1. PROTONIX [Concomitant]
  2. ZOFRAN [Concomitant]
  3. FLUCONAZOLE [Concomitant]
  4. TAXOL [Suspect]
     Dosage: 80 MG
  5. CYMBALTA [Concomitant]
  6. CISPLATIN [Suspect]
     Dosage: 40 MG

REACTIONS (6)
  - COUGH [None]
  - NAUSEA [None]
  - DEHYDRATION [None]
  - ASTHENIA [None]
  - RETCHING [None]
  - VOMITING [None]
